FAERS Safety Report 4633822-2 (Version None)
Quarter: 2005Q2

REPORT INFORMATION
  Report Type: 
  Country: None (occurrence: None)
  Receive Date: 20050411
  Receipt Date: 20050328
  Transmission Date: 20051028
  Serious: Yes (Other)
  Sender: FDA-Public Use
  Company Number: CHPA2005US00907

PATIENT
  Age: 9 Year
  Sex: Male
  Weight: 41.3 kg

DRUGS (4)
  1. TRIAMINIC SOFTCHEWS COUGH + SORE THROAT (NCH) (PSEUDOEPHEDRINE HYDROCH [Suspect]
  2. TRIAMINIC SOFTCHEWS ALLERGY SINUS HEADAC (NCH) (PSEUDOEPHEDRINE HYDROC [Suspect]
  3. ALBUTEROL [Concomitant]
  4. FLONASE [Concomitant]

REACTIONS (5)
  - BLOOD PRESSURE FLUCTUATION [None]
  - CHEST PAIN [None]
  - CONVULSION [None]
  - DYSPNOEA [None]
  - FALL [None]
